FAERS Safety Report 10003406 (Version 1)
Quarter: 2014Q1

REPORT INFORMATION
  Report Type: Spontaneous
  Country: FR (occurrence: FR)
  Receive Date: 20140312
  Receipt Date: 20140312
  Transmission Date: 20141002
  Serious: Yes (Disabling)
  Sender: FDA-Public Use
  Company Number: FR-ABBVIE-14P-056-1210733-00

PATIENT
  Sex: Male

DRUGS (1)
  1. MICROPAKINE [Suspect]
     Indication: EPILEPSY
     Route: 048
     Dates: start: 200709, end: 201309

REACTIONS (2)
  - Cognitive disorder [Recovering/Resolving]
  - Alopecia [Recovering/Resolving]
